FAERS Safety Report 10357160 (Version 1)
Quarter: 2014Q3

REPORT INFORMATION
  Report Type: Spontaneous
  Country: US (occurrence: US)
  Receive Date: 20140801
  Receipt Date: 20140801
  Transmission Date: 20150326
  Serious: Yes (Other)
  Sender: FDA-Public Use
  Company Number: US-SA-2014SA100359

PATIENT
  Age: 75 Year
  Sex: Female

DRUGS (3)
  1. LANTUS SOLOSTAR [Suspect]
     Active Substance: INSULIN GLARGINE
     Indication: TYPE 2 DIABETES MELLITUS
     Dosage: PRODUCT STARTED 5-6 YEARS AGO AND DOSE 30-50 UNITS DEPENDING ON HER BG LEVEL
     Route: 065
  2. SOLOSTAR [Concomitant]
     Active Substance: DEVICE
  3. LANTUS SOLOSTAR [Suspect]
     Active Substance: INSULIN GLARGINE
     Indication: TYPE 2 DIABETES MELLITUS
     Dosage: PRODUCT STARTED 5-6 YEARS AGO AND DOSE 30-50 UNITS DEPENDING ON HER BG LEVEL
     Route: 065

REACTIONS (6)
  - Neoplasm malignant [Unknown]
  - Osteoarthritis [Unknown]
  - Visual impairment [Unknown]
  - Vascular graft [Unknown]
  - Malaise [Unknown]
  - Pain in extremity [Unknown]
